FAERS Safety Report 5586131-1 (Version None)
Quarter: 2008Q1

REPORT INFORMATION
  Report Type: 
  Country: None (occurrence: None)
  Receive Date: 20080104
  Receipt Date: 20071012
  Transmission Date: 20080703
  Serious: Yes (Hospitalization)
  Sender: FDA-Public Use
  Company Number: 2007S1010046

PATIENT
  Age: 36 Year
  Sex: Female

DRUGS (2)
  1. AZATHIOPRINE [Suspect]
     Indication: CROHN'S DISEASE
     Dosage: DAILY
  2. AZATHIOPRINE [Concomitant]

REACTIONS (7)
  - DISSEMINATED INTRAVASCULAR COAGULATION [None]
  - GALLBLADDER DISORDER [None]
  - HAEMOGLOBIN DECREASED [None]
  - HEART RATE INCREASED [None]
  - PERITONITIS [None]
  - SALMONELLOSIS [None]
  - WHITE BLOOD CELL COUNT INCREASED [None]
